FAERS Safety Report 8662959 (Version 4)
Quarter: 2012Q4

REPORT INFORMATION
  Report Type: 
  Country: DK (occurrence: CA)
  Receive Date: 20120712
  Receipt Date: 20121220
  Transmission Date: 20130627
  Serious: Yes (Hospitalization, Other)
  Sender: FDA-Public Use
  Company Number: CA-FRI-1000037013

PATIENT
  Age: 67 Year
  Sex: Female

DRUGS (3)
  1. ESCITALOPRAM [Suspect]
  2. FUROSEMIDE [Suspect]
  3. QUETIAPINE [Suspect]

REACTIONS (7)
  - Torsade de pointes [Recovered/Resolved]
  - Electrocardiogram QT prolonged [Recovered/Resolved]
  - Hypokalaemia [Recovered/Resolved]
  - Hypomagnesaemia [Recovered/Resolved]
  - Electrolyte imbalance [Recovered/Resolved]
  - Drug interaction [Recovered/Resolved]
  - Electrocardiogram QT prolonged [Recovered/Resolved]
